FAERS Safety Report 6490193-7 (Version None)
Quarter: 2009Q4

REPORT INFORMATION
  Report Type: 
  Country: None (occurrence: None)
  Receive Date: 20091210
  Receipt Date: 20091210
  Transmission Date: 20100525
  Serious: Yes (Death, Life-Threatening, Hospitalization, Disabling, Other)
  Sender: FDA-Public Use
  Company Number: None

PATIENT
  Sex: Male
  Weight: 105.2345 kg

DRUGS (4)
  1. ABILIFY [Suspect]
     Indication: BIPOLAR DISORDER
     Dosage: 10 MG NIGHT; 15 MG NIGHT
  2. ABILIFY [Suspect]
     Indication: DEPRESSION
     Dosage: 10 MG NIGHT; 15 MG NIGHT
  3. ABILIFY [Suspect]
     Indication: MENTAL DISORDER
     Dosage: 10 MG NIGHT; 15 MG NIGHT
  4. ABILIFY [Suspect]
     Indication: SCHIZOPHRENIA
     Dosage: 10 MG NIGHT; 15 MG NIGHT

REACTIONS (6)
  - BACK DISORDER [None]
  - CARDIAC DISORDER [None]
  - DIZZINESS [None]
  - FATIGUE [None]
  - GASTRIC DISORDER [None]
  - RENAL DISORDER [None]
